FAERS Safety Report 6643174-4 (Version None)
Quarter: 2010Q1

REPORT INFORMATION
  Report Type: 
  Country: None (occurrence: None)
  Receive Date: 20100319
  Receipt Date: 20100310
  Transmission Date: 20100710
  Serious: Yes (Hospitalization, Other)
  Sender: FDA-Public Use
  Company Number: PHHY2010TR13798

PATIENT

DRUGS (4)
  1. STARLIX [Suspect]
     Indication: TYPE 2 DIABETES MELLITUS
     Dosage: 3 TIMES A DAY (3X 1)
     Route: 048
     Dates: start: 20090721, end: 20091101
  2. STARLIX [Suspect]
     Dosage: UNK
     Route: 048
     Dates: end: 20100311
  3. METFORMIN [Concomitant]
     Dosage: TWICW A DAY (2X1)
     Route: 048
     Dates: start: 20090721
  4. CANDESARTAN CILEXETIL [Concomitant]
     Dosage: ONCE A DAY (1X1)
     Route: 048
     Dates: start: 20090721

REACTIONS (4)
  - ALANINE AMINOTRANSFERASE INCREASED [None]
  - ASPARTATE AMINOTRANSFERASE INCREASED [None]
  - GAMMA-GLUTAMYLTRANSFERASE INCREASED [None]
  - HEPATIC STEATOSIS [None]
